FAERS Safety Report 10188164 (Version 2)
Quarter: 2014Q2

REPORT INFORMATION
  Report Type: Spontaneous
  Country: IT (occurrence: None)
  Receive Date: 20140520
  Receipt Date: 20140530
  Transmission Date: 20141212
  Serious: Yes (Other)
  Sender: FDA-Public Use
  Company Number: 2014AP003025

PATIENT
  Age: 41 Year
  Sex: Female

DRUGS (3)
  1. LEVOFLOXACIN (LEVOFLOXACIN) [Suspect]
     Indication: CYSTITIS
     Route: 048
     Dates: start: 20130328, end: 20130329
  2. ZIRTEC [Suspect]
     Indication: RHINITIS
     Route: 048
     Dates: start: 20130328, end: 20130328
  3. METOCLOPRAMIDE (METOCLOPRAMIDE) [Suspect]
     Indication: VOMITING
     Route: 048
     Dates: start: 20130628, end: 20130628

REACTIONS (1)
  - Rash generalised [None]
